FAERS Safety Report 4811836-7 (Version None)
Quarter: 2005Q4

REPORT INFORMATION
  Report Type: 
  Country: None (occurrence: None)
  Receive Date: 20051027
  Receipt Date: 20051027
  Transmission Date: 20060501
  Serious: Yes (Death, Hospitalization)
  Sender: FDA-Public Use
  Company Number: None

PATIENT
  Sex: Male
  Weight: 38.5557 kg

DRUGS (1)
  1. REMICADE [Suspect]
     Indication: CROHN'S DISEASE
     Dosage: 200 MG  EVERY 6 WEEKS  IV DRIP   4 HOUR INFUSIONS
     Route: 041
     Dates: start: 20040210, end: 20050525

REACTIONS (1)
  - T-CELL LYMPHOMA [None]
